FAERS Safety Report 5335344-2 (Version None)
Quarter: 2007Q2

REPORT INFORMATION
  Report Type: 
  Country: None (occurrence: None)
  Receive Date: 20070525
  Receipt Date: 20070514
  Transmission Date: 20071010
  Serious: Yes (Hospitalization, Other)
  Sender: FDA-Public Use
  Company Number: US-PFIZER INC-2007039165

PATIENT
  Age: 76 Year
  Sex: Male
  Weight: 76.2 kg

DRUGS (7)
  1. CELEBREX [Suspect]
     Indication: PAIN
     Route: 048
     Dates: start: 20070507, end: 20070508
  2. CELEBREX [Interacting]
  3. LEVAQUIN [Interacting]
     Indication: URINARY TRACT INFECTION
  4. NORVASC [Concomitant]
     Route: 048
  5. SYNTHROID [Concomitant]
     Route: 048
  6. HYDROCHLOROTHIAZIDE [Concomitant]
     Route: 048
  7. ACETYLSALICYLIC ACID SRT [Concomitant]
     Dosage: DAILY DOSE:81MG
     Route: 048

REACTIONS (14)
  - ARTHRALGIA [None]
  - BEDRIDDEN [None]
  - DRUG INTERACTION [None]
  - DYSPHAGIA [None]
  - FLUID RETENTION [None]
  - GAIT DISTURBANCE [None]
  - JOINT SWELLING [None]
  - NERVOUS SYSTEM DISORDER [None]
  - POOR PERIPHERAL CIRCULATION [None]
  - SWELLING FACE [None]
  - TRANSIENT ISCHAEMIC ATTACK [None]
  - TREMOR [None]
  - URINARY TRACT INFECTION [None]
  - WHEELCHAIR USER [None]
